FAERS Safety Report 11092329 (Version 1)
Quarter: 2015Q2

REPORT INFORMATION
  Report Type: Spontaneous
  Country: BR (occurrence: BR)
  Receive Date: 20150506
  Receipt Date: 20150506
  Transmission Date: 20150821
  Serious: Yes (Other)
  Sender: FDA-Public Use
  Company Number: BR-ROCHE-1571400

PATIENT
  Age: 63 Year
  Sex: Female

DRUGS (6)
  1. RIVOTRIL [Suspect]
     Active Substance: CLONAZEPAM
     Indication: PRODUCT USED FOR UNKNOWN INDICATION
     Route: 065
  2. OLCADIL [Suspect]
     Active Substance: CLOXAZOLAM
     Indication: NERVOUSNESS
     Dosage: ADMINISTRATION OF HALF TABLET
     Route: 065
  3. OLCADIL [Suspect]
     Active Substance: CLOXAZOLAM
     Indication: BLOOD PRESSURE INCREASED
  4. DIAZEPAM. [Suspect]
     Active Substance: DIAZEPAM
     Indication: PRODUCT USED FOR UNKNOWN INDICATION
     Dosage: ADMINISTRATION OF HALF TABLET
     Route: 065
  5. FLUOXETINE [Concomitant]
     Active Substance: FLUOXETINE\FLUOXETINE HYDROCHLORIDE
  6. PREDNISONE. [Suspect]
     Active Substance: PREDNISONE
     Indication: PRODUCT USED FOR UNKNOWN INDICATION
     Route: 065

REACTIONS (10)
  - Anxiety [Unknown]
  - Arthralgia [Unknown]
  - Localised infection [Unknown]
  - Somnolence [Unknown]
  - Erythema [Unknown]
  - Malaise [Unknown]
  - Pruritus [Unknown]
  - Heart rate increased [Unknown]
  - Fear [Unknown]
  - Fear of death [Unknown]
